FAERS Safety Report 8675629 (Version 3)
Quarter: 2012Q4

REPORT INFORMATION
  Report Type: 
  Country: GB (occurrence: GB)
  Receive Date: 20120720
  Receipt Date: 20120904
  Transmission Date: 20130627
  Serious: Yes (Other)
  Sender: FDA-Public Use
  Company Number: GB-GLAXOSMITHKLINE-B0814994A

PATIENT
  Age: 65 None
  Sex: Male
  Weight: 79.5 kg

DRUGS (7)
  1. VENTOLIN [Suspect]
     Indication: ASTHMA
     Dosage: 2PUFF As required
     Route: 055
     Dates: start: 20120711, end: 20120713
  2. SIMVASTATIN [Concomitant]
     Indication: HYPERCHOLESTEROLAEMIA
     Dosage: 10MG per day
  3. SERETIDE [Concomitant]
     Dosage: 2PUFF Twice per day
     Dates: start: 20120730
  4. LOSARTAN [Concomitant]
     Indication: HYPERTENSION
  5. BENDROFLUMETHIAZIDE [Concomitant]
     Indication: HYPERTENSION
  6. AMLODIPINE [Concomitant]
     Indication: HYPERTENSION
     Dosage: 10MG per day
  7. CO-DYDRAMOL [Concomitant]
     Dates: start: 20120720

REACTIONS (4)
  - Asthma [Recovered/Resolved]
  - Drug ineffective [Recovered/Resolved]
  - Device issue [Unknown]
  - Product quality issue [Unknown]
